FAERS Safety Report 7834478-8 (Version None)
Quarter: 2011Q4

REPORT INFORMATION
  Report Type: 
  Country: None (occurrence: None)
  Receive Date: 20111024
  Receipt Date: 20111014
  Transmission Date: 20120403
  Serious: Yes (Other)
  Sender: FDA-Public Use
  Company Number: US-ASTRAZENECA-2011SE51756

PATIENT
  Age: 78 Year
  Sex: Female
  Weight: 81.6 kg

DRUGS (15)
  1. TOPROL-XL [Suspect]
     Dosage: 50 MG DAILY, GENERIC
     Route: 048
  2. PROMETHADINE [Concomitant]
     Dosage: 6.25/5MG Q6H
  3. FEMARA [Concomitant]
  4. NEXIUM [Suspect]
     Indication: HIATUS HERNIA
     Route: 048
  5. KLOR-ZOM8DR8MEQ [Concomitant]
     Dosage: DAILY
  6. TOPROL-XL [Suspect]
     Route: 048
  7. HYDROCODONE TM [Concomitant]
  8. HYDROCHLOROT [Concomitant]
  9. TETRACYCLINE [Concomitant]
  10. ALPRAZOLAM [Concomitant]
  11. WARFARIN SODIUM [Concomitant]
  12. CIPROFLOXACIN [Concomitant]
  13. ZEMABEPAM [Concomitant]
  14. BONIVA [Concomitant]
     Indication: OSTEOPOROSIS
  15. VITAMIN D [Concomitant]

REACTIONS (7)
  - NEPHROLITHIASIS [None]
  - URINARY TRACT INFECTION [None]
  - HAEMATURIA [None]
  - BREAST CANCER [None]
  - ABDOMINAL PAIN [None]
  - OFF LABEL USE [None]
  - ABDOMINAL TENDERNESS [None]
